FAERS Safety Report 9479128 (Version 2)
Quarter: 2013Q3

REPORT INFORMATION
  Report Type: Report from Study
  Country: HU (occurrence: HU)
  Receive Date: 20130827
  Receipt Date: 20130827
  Transmission Date: 20140515
  Serious: Yes (Hospitalization)
  Sender: FDA-Public Use
  Company Number: HU-BRISTOL-MYERS SQUIBB COMPANY-14772693

PATIENT
  Age: 78 Year
  Sex: Male

DRUGS (5)
  1. WARFARIN SODIUM [Suspect]
     Indication: EMBOLISM
     Dosage: NO OF COURSE 1
     Route: 048
     Dates: start: 20090902, end: 20090907
  2. ENOXAPARIN [Suspect]
     Indication: EMBOLISM
     Dosage: NO OF COURSE 2
     Route: 058
     Dates: start: 20090902, end: 20090908
  3. PLACEBO [Suspect]
     Indication: EMBOLISM
     Dosage: APIXABAN:ORAL:TILL 08SEP09?WARFARIN:ORAL:TILL 07SEP09?ENOXAPARIN:SC:TILL 08SEP09
     Dates: start: 20090902, end: 200909
  4. METOPROLOL [Concomitant]
     Dates: start: 2005
  5. ACETYLSALICILIC ACID [Concomitant]
     Dates: start: 2005

REACTIONS (1)
  - Intracardiac thrombus [Recovered/Resolved]
